FAERS Safety Report 23552416 (Version 2)
Quarter: 2024Q2

REPORT INFORMATION
  Report Type: Spontaneous
  Country: CA (occurrence: None)
  Receive Date: 20240222
  Receipt Date: 20240403
  Transmission Date: 20240716
  Serious: Yes (Other)
  Sender: FDA-Public Use
  Company Number: CA-PFIZER INC-202400045201

PATIENT
  Age: 70 Year
  Sex: Female
  Weight: 88.1 kg

DRUGS (5)
  1. METHOTREXATE [Suspect]
     Active Substance: METHOTREXATE
     Indication: Product used for unknown indication
     Dosage: 1 DF, WEEKLY
     Dates: start: 1980
  2. METHOTREXATE [Suspect]
     Active Substance: METHOTREXATE
     Dosage: (7.5 MG P.O. WEEKLY)
     Dates: start: 20240101
  3. HUMIRA [Concomitant]
     Active Substance: ADALIMUMAB
     Dosage: CYCLIC, ONGOING
  4. FOLIC ACID [Concomitant]
     Active Substance: FOLIC ACID
     Indication: Psoriasis
     Dates: start: 20240101
  5. BETAMETHASONE DIPROPIONATE\CALCIPOTRIENE MONOHYDRATE [Concomitant]
     Active Substance: BETAMETHASONE DIPROPIONATE\CALCIPOTRIENE MONOHYDRATE
     Indication: Psoriasis
     Dates: start: 20191212

REACTIONS (2)
  - Road traffic accident [Recovering/Resolving]
  - Ankle fracture [Recovering/Resolving]

NARRATIVE: CASE EVENT DATE: 20240101
